FAERS Safety Report 24009737 (Version 3)
Quarter: 2024Q3

REPORT INFORMATION
  Report Type: Spontaneous
  Country: JP (occurrence: JP)
  Receive Date: 20240625
  Receipt Date: 20240805
  Transmission Date: 20241016
  Serious: Yes (Hospitalization)
  Sender: ORGANON
  Company Number: JP-ORGANON-O2405JPN000147

PATIENT
  Age: 88 Year
  Sex: Female

DRUGS (3)
  1. BONALON [Suspect]
     Active Substance: ALENDRONATE SODIUM
     Indication: Osteoporosis
     Dosage: 35 MILLIGRAM, QW
     Route: 048
  2. ICOSAPENT ETHYL [Concomitant]
     Active Substance: ICOSAPENT ETHYL
     Indication: Hyperlipidaemia
     Dosage: 1800 MILLIGRAM, QD
     Route: 048
  3. ALFACALCIDOL [Concomitant]
     Active Substance: ALFACALCIDOL
     Indication: Osteoporosis
     Dosage: 1 MICROGRAM, QD
     Route: 048

REACTIONS (3)
  - Osteonecrosis of jaw [Recovered/Resolved]
  - Cellulitis [Recovering/Resolving]
  - Pathological fracture [Recovered/Resolved]

NARRATIVE: CASE EVENT DATE: 20180405
